FAERS Safety Report 13138869 (Version 1)
Quarter: 2017Q1

REPORT INFORMATION
  Report Type: Spontaneous
  Country: US (occurrence: US)
  Receive Date: 20170123
  Receipt Date: 20170123
  Transmission Date: 20170428
  Serious: No
  Sender: FDA-Public Use
  Company Number: US-PFIZER INC-2017025003

PATIENT
  Age: 77 Year
  Sex: Male

DRUGS (1)
  1. SUTENT [Suspect]
     Active Substance: SUNITINIB MALATE
     Indication: RENAL CELL CARCINOMA
     Dosage: 50 MG, CYCLIC (28 DAYS ON/14 DAYS OFF)(AT BEDTIME)

REACTIONS (8)
  - Vomiting [Unknown]
  - Decreased appetite [Unknown]
  - Nausea [Unknown]
  - Asthenia [Unknown]
  - Diarrhoea [Unknown]
  - Ageusia [Unknown]
  - Weight decreased [Unknown]
  - Weight increased [Unknown]
